FAERS Safety Report 8526031-8 (Version None)
Quarter: 2012Q3

REPORT INFORMATION
  Report Type: 
  Country: None (occurrence: None)
  Receive Date: 20120720
  Receipt Date: 20120709
  Transmission Date: 20120928
  Serious: Yes (Other)
  Sender: FDA-Public Use
  Company Number: US-AMGEN-USASP2012042553

PATIENT
  Age: 9 Year
  Sex: Male

DRUGS (3)
  1. PROLIA [Suspect]
     Dosage: 1.25 MG/KG, QMO
  2. PROLIA [Suspect]
     Dosage: 1.50 MG/KG, UNK
  3. PROLIA [Suspect]
     Dosage: 1 MG/KG, QMO

REACTIONS (3)
  - HYPERPARATHYROIDISM SECONDARY [None]
  - HYPOPHOSPHATAEMIA [None]
  - HYPERCALCAEMIA [None]
